FAERS Safety Report 10881368 (Version 1)
Quarter: 2015Q1

REPORT INFORMATION
  Report Type: Report from Study
  Country: BR (occurrence: BR)
  Receive Date: 20150303
  Receipt Date: 20150303
  Transmission Date: 20150721
  Serious: Yes (Hospitalization, Other)
  Sender: FDA-Public Use
  Company Number: PHHY2015BR024627

PATIENT
  Sex: Female

DRUGS (2)
  1. EXELON PATCH [Suspect]
     Active Substance: RIVASTIGMINE
     Dosage: 9.5 MG, QD
     Route: 062
     Dates: end: 201501
  2. EXELON PATCH [Suspect]
     Active Substance: RIVASTIGMINE
     Indication: DEMENTIA ALZHEIMER^S TYPE
     Dosage: 4.6 MG, QD
     Route: 062
     Dates: start: 201312

REACTIONS (12)
  - Dyspnoea [Unknown]
  - Renal impairment [Recovering/Resolving]
  - Cognitive disorder [Unknown]
  - Confusional state [Unknown]
  - Hallucination, visual [Unknown]
  - Weight decreased [Not Recovered/Not Resolved]
  - Pulmonary oedema [Not Recovered/Not Resolved]
  - Cardiac disorder [Not Recovered/Not Resolved]
  - Liver disorder [Unknown]
  - General physical health deterioration [Unknown]
  - Visual impairment [Unknown]
  - Oxygen saturation decreased [Unknown]
